FAERS Safety Report 5059015-5 (Version None)
Quarter: 2006Q3

REPORT INFORMATION
  Report Type: 
  Country: None (occurrence: None)
  Receive Date: 20060719
  Receipt Date: 20060707
  Transmission Date: 20061208
  Serious: Yes (Death)
  Sender: FDA-Public Use
  Company Number: US017900

PATIENT
  Age: 15 Year
  Sex: Female

DRUGS (3)
  1. PROVIGIL [Suspect]
     Dosage: 50 MG QD ORAL
     Route: 048
     Dates: start: 20060601, end: 20060601
  2. PROVIGIL [Suspect]
     Dosage: 100 MG QD ORAL
     Route: 048
     Dates: start: 20060601
  3. CYMBALTA [Suspect]
     Indication: DEPRESSION
     Dates: start: 20050101

REACTIONS (2)
  - COMPLETED SUICIDE [None]
  - INJURY ASPHYXIATION [None]
